FAERS Safety Report 4566773-2 (Version None)
Quarter: 2005Q1

REPORT INFORMATION
  Report Type: 
  Country: None (occurrence: None)
  Receive Date: 20050201
  Receipt Date: 20011016
  Transmission Date: 20050727
  Serious: Yes (Other)
  Sender: FDA-Public Use
  Company Number: US-BRISTOL-MYERS SQUIBB COMPANY-11537800

PATIENT
  Age: 44 Year
  Sex: Female

DRUGS (8)
  1. STADOL [Suspect]
     Route: 045
  2. FIORICET [Concomitant]
  3. KLONOPIN [Concomitant]
  4. SINEMET CR [Concomitant]
     Dosage: DOSING: 25/100
  5. IMITREX [Concomitant]
  6. LORTAB [Concomitant]
  7. PHENERGAN [Concomitant]
  8. ZOLOFT [Concomitant]

REACTIONS (1)
  - DEPENDENCE [None]
